FAERS Safety Report 8488535-6 (Version None)
Quarter: 2012Q3

REPORT INFORMATION
  Report Type: 
  Country: None (occurrence: None)
  Receive Date: 20120705
  Receipt Date: 20120702
  Transmission Date: 20120928
  Serious: Yes (Other)
  Sender: FDA-Public Use
  Company Number: US-PFIZER INC-2012158598

PATIENT
  Sex: Female
  Weight: 124 kg

DRUGS (4)
  1. CORGARD [Suspect]
     Indication: PALPITATIONS
  2. CORGARD [Suspect]
     Indication: HEART RATE INCREASED
  3. CORGARD [Suspect]
     Indication: HYPOAESTHESIA ORAL
  4. CORGARD [Suspect]
     Indication: EXTRASYSTOLES
     Dosage: 80 MG, 1X/DAY
     Route: 048
     Dates: end: 20120626

REACTIONS (4)
  - PALPITATIONS [None]
  - BLOOD PRESSURE INCREASED [None]
  - MUSCULOSKELETAL DISCOMFORT [None]
  - FEELING ABNORMAL [None]
